FAERS Safety Report 24748648 (Version 2)
Quarter: 2025Q1

REPORT INFORMATION
  Report Type: Spontaneous
  Country: IN (occurrence: IN)
  Receive Date: 20241218
  Receipt Date: 20250101
  Transmission Date: 20250409
  Serious: Yes (Death, Hospitalization, Other)
  Sender: ALEMBIC
  Company Number: IN-ALEMBIC PHARMACUETICALS LIMITED-2024SCAL001814

PATIENT

DRUGS (7)
  1. LINEZOLID [Suspect]
     Active Substance: LINEZOLID
     Indication: Pulmonary tuberculosis
     Route: 065
  2. BEDAQUILINE [Suspect]
     Active Substance: BEDAQUILINE
     Indication: Pulmonary tuberculosis
     Route: 065
  3. LEVOFLOXACIN [Suspect]
     Active Substance: LEVOFLOXACIN
     Indication: Pulmonary tuberculosis
     Route: 065
  4. CYCLOSERINE [Suspect]
     Active Substance: CYCLOSERINE
     Indication: Pulmonary tuberculosis
     Route: 065
  5. CLOFAZIMINE [Suspect]
     Active Substance: CLOFAZIMINE
     Indication: Pulmonary tuberculosis
     Route: 065
  6. RIFAMPIN [Suspect]
     Active Substance: RIFAMPIN
     Indication: Pulmonary tuberculosis
     Route: 065
  7. ISONIAZID [Suspect]
     Active Substance: ISONIAZID
     Indication: Pulmonary tuberculosis
     Route: 065

REACTIONS (16)
  - Lactic acidosis [Fatal]
  - Pancytopenia [Fatal]
  - Dyspnoea [Fatal]
  - Nausea [Fatal]
  - Vomiting [Fatal]
  - Blood lactic acid increased [Fatal]
  - Cough [Fatal]
  - Chest pain [Fatal]
  - Ventricular arrhythmia [Fatal]
  - Procalcitonin decreased [Fatal]
  - Haemoglobin decreased [Fatal]
  - White blood cell count decreased [Fatal]
  - Oxygen saturation decreased [Fatal]
  - PCO2 decreased [Fatal]
  - PO2 decreased [Fatal]
  - Blood bicarbonate decreased [Fatal]
